FAERS Safety Report 5143261-6 (Version None)
Quarter: 2006Q4

REPORT INFORMATION
  Report Type: 
  Country: None (occurrence: None)
  Receive Date: 20061030
  Receipt Date: 20061016
  Transmission Date: 20070319
  Serious: Yes (Other)
  Sender: FDA-Public Use
  Company Number: 2006130039

PATIENT
  Sex: 0

DRUGS (1)
  1. BEXTRA [Suspect]
     Dates: start: 20030101

REACTIONS (2)
  - PAIN [None]
  - RASH [None]
